FAERS Safety Report 17598192 (Version 2)
Quarter: 2020Q1

REPORT INFORMATION
  Report Type: Spontaneous
  Country: RU (occurrence: RU)
  Receive Date: 20200330
  Receipt Date: 20200330
  Transmission Date: 20200409
  Serious: Yes (Hospitalization, Other)
  Sender: FDA-Public Use
  Company Number: RU-PFIZER INC-2020113776

PATIENT
  Age: 48 Year
  Sex: Female
  Weight: 59 kg

DRUGS (4)
  1. NOVORAPID [Concomitant]
     Active Substance: INSULIN ASPART
     Indication: TYPE 1 DIABETES MELLITUS
     Dosage: 10 IU, 1X/DAY, IN THE AFTERNOON
  2. AMOXICILLIN AND CLAVULANATE POTASSIUM [Concomitant]
     Active Substance: AMOXICILLIN\CLAVULANATE POTASSIUM
     Dosage: UNK, 2X/DAY (875/125 MG)
  3. RYZODEG 70/30 [Concomitant]
     Active Substance: INSULIN ASPART\INSULIN DEGLUDEC
     Indication: TYPE 1 DIABETES MELLITUS
     Dosage: 30 IU, 2X/DAY
  4. AZITHROMYCIN ANHYDROUS. [Suspect]
     Active Substance: AZITHROMYCIN ANHYDROUS
     Indication: CARBUNCLE
     Dosage: 1.0 G, 2X/DAY (4.5 DAYS, TOTAL COURSE DOSE - 9.0 G)

REACTIONS (2)
  - Hepatotoxicity [Recovering/Resolving]
  - Accidental overdose [Recovering/Resolving]
